FAERS Safety Report 8920300 (Version 1)
Quarter: 2012Q4

REPORT INFORMATION
  Report Type: 
  Country: US (occurrence: US)
  Receive Date: 20121122
  Receipt Date: 20121122
  Transmission Date: 20130627
  Serious: Yes (Other)
  Sender: FDA-Public Use
  Company Number: US-JNJFOC-20121107975

PATIENT
  Age: 48 Year
  Sex: Male
  Weight: 68.04 kg

DRUGS (2)
  1. TYLENOL COLD MULTI-SYMPTOM NIGHTTIME [Suspect]
     Indication: PYREXIA
     Dosage: 1 dosing cup
     Route: 048
     Dates: start: 20121110, end: 20121110
  2. TYLENOL COLD MULTI-SYMPTOM NIGHTTIME [Suspect]
     Indication: NASOPHARYNGITIS
     Dosage: 1 dosing cup
     Route: 048
     Dates: start: 20121110, end: 20121110

REACTIONS (4)
  - Product tampering [Unknown]
  - Malaise [Recovered/Resolved]
  - Diarrhoea [Recovered/Resolved]
  - Abdominal pain upper [Recovered/Resolved]
